FAERS Safety Report 18461328 (Version 1)
Quarter: 2020Q4

REPORT INFORMATION
  Report Type: Spontaneous
  Country: US (occurrence: US)
  Receive Date: 20201104
  Receipt Date: 20201104
  Transmission Date: 20210114
  Serious: No
  Sender: FDA-Public Use
  Company Number: US-AUROBINDO-AUR-APL-2019-068859

PATIENT
  Sex: Male
  Weight: 106 kg

DRUGS (1)
  1. ESZOPICLONE TABLET 3 MG USP [Suspect]
     Active Substance: ESZOPICLONE
     Indication: INSOMNIA
     Dosage: 3 MILLIGRAM, ONCE A DAY AT NIGHT BEFORE GOING TO BED
     Route: 065

REACTIONS (1)
  - Drug ineffective [Not Recovered/Not Resolved]
